FAERS Safety Report 6261415-2 (Version None)
Quarter: 2009Q3

REPORT INFORMATION
  Report Type: 
  Country: None (occurrence: None)
  Receive Date: 20090709
  Receipt Date: 20090429
  Transmission Date: 20100115
  Serious: Yes (Other)
  Sender: FDA-Public Use
  Company Number: US-PFIZER INC-2009206349

PATIENT
  Age: 55 Year
  Sex: Female

DRUGS (1)
  1. LIPITOR [Suspect]
     Dosage: 10 MG, UNK

REACTIONS (3)
  - FATIGUE [None]
  - NECK PAIN [None]
  - SOMNOLENCE [None]
